FAERS Safety Report 8590231-1 (Version None)
Quarter: 2012Q3

REPORT INFORMATION
  Report Type: 
  Country: None (occurrence: None)
  Receive Date: 20120813
  Receipt Date: 20120803
  Transmission Date: 20120928
  Serious: Yes (Other)
  Sender: FDA-Public Use
  Company Number: PL-BRISTOL-MYERS SQUIBB COMPANY-15664220

PATIENT
  Age: 58 Year
  Sex: Male

DRUGS (5)
  1. LITHIUM CARBONATE [Interacting]
     Indication: BIPOLAR DISORDER
     Dosage: LITHIUM CARBONICUM
     Route: 048
  2. OLANZAPINE [Suspect]
     Dosage: INITIAL 10MG,THEN 5MG
  3. VALPROIC ACID [Suspect]
     Indication: BIPOLAR DISORDER
  4. ABILIFY [Interacting]
     Indication: BIPOLAR DISORDER
     Dosage: TABLET
     Route: 048
     Dates: start: 20110318
  5. ABILIFY [Interacting]
     Indication: SCHIZOAFFECTIVE DISORDER
     Dosage: TABLET
     Route: 048
     Dates: start: 20110318

REACTIONS (4)
  - DRUG INTERACTION [None]
  - NEUROLEPTIC MALIGNANT SYNDROME [None]
  - MEMORY IMPAIRMENT [None]
  - TOXICITY TO VARIOUS AGENTS [None]
